FAERS Safety Report 9858673 (Version 1)
Quarter: 2014Q1

REPORT INFORMATION
  Report Type: Spontaneous
  Country: US (occurrence: None)
  Receive Date: 20140129
  Receipt Date: 20140129
  Transmission Date: 20141002
  Serious: Yes (Hospitalization, Other)
  Sender: FDA-Public Use
  Company Number: ADR-2014UNK008

PATIENT
  Age: 19 Year
  Sex: Female

DRUGS (1)
  1. SERTRALINE [Suspect]
     Dosage: UNK, UNK, + ORAL
     Route: 048

REACTIONS (10)
  - Serotonin syndrome [None]
  - Overdose [None]
  - Body temperature increased [None]
  - Hyperreflexia [None]
  - Clonus [None]
  - Aspiration [None]
  - Staphylococcus test positive [None]
  - Serratia test positive [None]
  - Lung infiltration [None]
  - Atelectasis [None]
